FAERS Safety Report 17675680 (Version 1)
Quarter: 2020Q2

REPORT INFORMATION
  Report Type: Spontaneous
  Country: US (occurrence: US)
  Receive Date: 20200416
  Receipt Date: 20200416
  Transmission Date: 20200714
  Serious: Yes (Hospitalization)
  Sender: FDA-Public Use
  Company Number: None

PATIENT
  Age: 58 Year
  Sex: Female

DRUGS (1)
  1. UDENYCA [Suspect]
     Active Substance: PEGFILGRASTIM-CBQV
     Indication: AGRANULOCYTOSIS
     Dosage: ?          OTHER FREQUENCY:ONCE;?
     Route: 058

REACTIONS (1)
  - Chemotherapy [None]

NARRATIVE: CASE EVENT DATE: 20200414
